FAERS Safety Report 24093780 (Version 1)
Quarter: 2024Q3

REPORT INFORMATION
  Report Type: Spontaneous
  Country: CN (occurrence: CN)
  Receive Date: 20240716
  Receipt Date: 20240716
  Transmission Date: 20241016
  Serious: Yes (Other)
  Sender: JOHNSON AND JOHNSON
  Company Number: CN-JNJFOC-20240728056

PATIENT

DRUGS (1)
  1. REMICADE [Suspect]
     Active Substance: INFLIXIMAB
     Indication: Colitis ulcerative
     Route: 041

REACTIONS (15)
  - Pneumonia [Recovering/Resolving]
  - Clostridium difficile infection [Recovering/Resolving]
  - Upper respiratory tract infection [Recovering/Resolving]
  - Infusion related reaction [Unknown]
  - Alanine aminotransferase increased [Recovered/Resolved]
  - Aspartate aminotransferase increased [Recovered/Resolved]
  - Tonsillitis [Recovering/Resolving]
  - Cytomegalovirus infection [Recovering/Resolving]
  - Stoma site infection [Recovering/Resolving]
  - Infection [Recovering/Resolving]
  - Respiratory tract infection [Recovering/Resolving]
  - Gastrointestinal infection [Recovering/Resolving]
  - Drug level decreased [Unknown]
  - Drug specific antibody [Unknown]
  - Drug ineffective [Unknown]
